FAERS Safety Report 22082667 (Version 1)
Quarter: 2023Q1

REPORT INFORMATION
  Report Type: Spontaneous
  Country: CN (occurrence: None)
  Receive Date: 20230310
  Receipt Date: 20230310
  Transmission Date: 20230417
  Serious: Yes (Life-Threatening)
  Sender: FDA-Public Use
  Company Number: CN-ROCHE-3301522

PATIENT
  Age: 8 Year
  Sex: Male
  Weight: 36.5 kg

DRUGS (3)
  1. RITUXIMAB [Suspect]
     Active Substance: RITUXIMAB
     Indication: Nephrotic syndrome
     Route: 041
     Dates: start: 20230213
  2. TACROLIMUS [Concomitant]
     Active Substance: TACROLIMUS
     Indication: Nephropathy
     Dosage: 1MG IN THE MORNING, 0.5MG IN THE EVENING
     Route: 048
  3. PREDNISONE ACETATE [Concomitant]
     Active Substance: PREDNISONE ACETATE
     Indication: Nephropathy

REACTIONS (6)
  - Chest discomfort [Recovered/Resolved]
  - Palpitations [Recovered/Resolved]
  - Anaphylactoid reaction [Recovered/Resolved]
  - Pallor [Unknown]
  - Vomiting [Recovered/Resolved]
  - Off label use [Unknown]

NARRATIVE: CASE EVENT DATE: 20230213
